FAERS Safety Report 7675561-X (Version None)
Quarter: 2011Q3

REPORT INFORMATION
  Report Type: 
  Country: None (occurrence: None)
  Receive Date: 20110810
  Receipt Date: 20110624
  Transmission Date: 20111222
  Serious: Yes (Death, Hospitalization)
  Sender: FDA-Public Use
  Company Number: JP-B.I. PHARMACEUTICALS,INC./RIDGEFIELD-2011-DE-04437BY

PATIENT
  Sex: Female

DRUGS (6)
  1. LOXOPROFEN [Suspect]
     Indication: SPINAL COLUMN STENOSIS
     Route: 048
     Dates: start: 20110402, end: 20110405
  2. ALENDRONATE SODIUM [Suspect]
     Indication: SPINAL COLUMN STENOSIS
     Dosage: 35 MG
     Route: 048
     Dates: start: 20100528, end: 20110405
  3. LIMAPROST [Suspect]
     Indication: SPINAL COLUMN STENOSIS
     Dosage: 15 MG
     Route: 048
     Dates: start: 20100528, end: 20110405
  4. TELMISARTAN [Suspect]
     Indication: SPINAL COLUMN STENOSIS
     Route: 048
     Dates: start: 20101201, end: 20110405
  5. AMLODIPINE [Suspect]
     Indication: SPINAL COLUMN STENOSIS
     Route: 048
     Dates: start: 20101201, end: 20110405
  6. ALLOPURINOL [Suspect]
     Indication: HYPERURICAEMIA
     Dosage: 200 MG
     Route: 048
     Dates: start: 20110228, end: 20110408

REACTIONS (14)
  - DRUG ERUPTION [None]
  - PYREXIA [None]
  - ANAEMIA [None]
  - RESPIRATORY FAILURE [None]
  - SEPSIS [None]
  - PLATELET COUNT DECREASED [None]
  - PANCYTOPENIA [None]
  - GASTROINTESTINAL HAEMORRHAGE [None]
  - DISSEMINATED INTRAVASCULAR COAGULATION [None]
  - SYSTEMIC CANDIDA [None]
  - AGRANULOCYTOSIS [None]
  - PNEUMONIA [None]
  - MULTI-ORGAN FAILURE [None]
  - GRANULOCYTE COUNT DECREASED [None]
